FAERS Safety Report 13245935 (Version 2)
Quarter: 2017Q3

REPORT INFORMATION
  Report Type: Spontaneous
  Country: VN (occurrence: VN)
  Receive Date: 20170217
  Receipt Date: 20170830
  Transmission Date: 20171127
  Serious: No
  Sender: FDA-Public Use
  Company Number: VN-ROCHE-1893832

PATIENT
  Age: 64 Year
  Sex: Female
  Weight: 48 kg

DRUGS (7)
  1. AVASTIN [Suspect]
     Active Substance: BEVACIZUMAB
     Indication: COLON CANCER METASTATIC
     Dosage: 6 CYCLES, COMBINED WITH XELODA
     Route: 042
     Dates: start: 201605, end: 201609
  2. XELODA [Suspect]
     Active Substance: CAPECITABINE
     Indication: COLON CANCER METASTATIC
     Dosage: 4 CYCLES AS SINGLE THERAPY
     Route: 048
     Dates: start: 2012, end: 2012
  3. XELODA [Suspect]
     Active Substance: CAPECITABINE
     Indication: COLON CANCER
     Dosage: 4 CYCLES, COMBINED WITH OXALIPLATIN
     Route: 048
     Dates: start: 2012, end: 2012
  4. AVASTIN [Suspect]
     Active Substance: BEVACIZUMAB
     Indication: COLON CANCER METASTATIC
  5. XELODA [Suspect]
     Active Substance: CAPECITABINE
     Dosage: SINGLE THERAPY
     Route: 048
     Dates: start: 201609
  6. OXALIPLATIN. [Suspect]
     Active Substance: OXALIPLATIN
     Indication: COLON CANCER
     Dosage: 4 CYCLES, COMBINED WITH XELODA
     Route: 042
     Dates: start: 2012, end: 2012
  7. XELODA [Suspect]
     Active Substance: CAPECITABINE
     Indication: COLON CANCER METASTATIC
     Dosage: 6 CYCLES, COMBINED WITH AVASTIN
     Route: 048
     Dates: start: 201605, end: 201609

REACTIONS (2)
  - Fatigue [Recovered/Resolved]
  - Decreased appetite [Recovered/Resolved]

NARRATIVE: CASE EVENT DATE: 2012
